FAERS Safety Report 6434882-9 (Version None)
Quarter: 2009Q4

REPORT INFORMATION
  Report Type: 
  Country: None (occurrence: None)
  Receive Date: 20091106
  Receipt Date: 20091027
  Transmission Date: 20100525
  Serious: Yes (Death)
  Sender: FDA-Public Use
  Company Number: 418736

PATIENT
  Sex: 0

DRUGS (3)
  1. CYTARABINE [Suspect]
     Dosage: 2 G/M2, TRANSPLACENTAL
     Route: 064
  2. FLUDARA [Suspect]
     Dosage: 30 MG/M2,TRANSPLACENTAL
     Route: 064
  3. IDARUBICIN HCL [Suspect]
     Dosage: 12 MG/M2, TRANSPLACENTAL
     Route: 064

REACTIONS (2)
  - INTRA-UTERINE DEATH [None]
  - MATERNAL DRUGS AFFECTING FOETUS [None]
